FAERS Safety Report 17436169 (Version 2)
Quarter: 2020Q4

REPORT INFORMATION
  Report Type: Report from Study
  Country: CA (occurrence: CA)
  Receive Date: 20200219
  Receipt Date: 20201111
  Transmission Date: 20210113
  Serious: Yes (Other)
  Sender: FDA-Public Use
  Company Number: CA-JNJFOC-20191128376

PATIENT
  Age: 44 Year
  Sex: Female
  Weight: 81.3 kg

DRUGS (2)
  1. STELARA [Suspect]
     Active Substance: USTEKINUMAB
     Route: 058
     Dates: start: 20191113
  2. STELARA [Suspect]
     Active Substance: USTEKINUMAB
     Indication: CROHN^S DISEASE
     Dosage: STRENGTH = 130 MG
     Route: 042
     Dates: start: 20191113

REACTIONS (3)
  - Diarrhoea [Unknown]
  - Urinary tract infection [Not Recovered/Not Resolved]
  - Sinusitis bacterial [Unknown]

NARRATIVE: CASE EVENT DATE: 201911
